FAERS Safety Report 5818186-0 (Version None)
Quarter: 2008Q3

REPORT INFORMATION
  Report Type: 
  Country: None (occurrence: None)
  Receive Date: 20080722
  Receipt Date: 20080710
  Transmission Date: 20090109
  Serious: Yes (Other)
  Sender: FDA-Public Use
  Company Number: US-PFIZER INC-2008057867

PATIENT
  Sex: Male
  Weight: 56.818 kg

DRUGS (1)
  1. SULFASALAZINE [Suspect]
     Indication: CROHN'S DISEASE
     Route: 048

REACTIONS (2)
  - HYPERSENSITIVITY [None]
  - MALAISE [None]
